FAERS Safety Report 11627185 (Version 1)
Quarter: 2015Q4

REPORT INFORMATION
  Report Type: Spontaneous
  Country: US (occurrence: US)
  Receive Date: 20151013
  Receipt Date: 20151013
  Transmission Date: 20160304
  Serious: No
  Sender: FDA-Public Use
  Company Number: US-AMGEN-USASP2015013275

PATIENT
  Age: 49 Year
  Sex: Male

DRUGS (1)
  1. NEUPOGEN [Suspect]
     Active Substance: FILGRASTIM
     Indication: HAEMATOPOIETIC STEM CELL MOBILISATION
     Dosage: 780 MUG, DAILY (10 MCG/KG/DAY)
     Route: 065
     Dates: start: 20150204

REACTIONS (2)
  - Procalcitonin increased [Unknown]
  - Infection [Unknown]
